FAERS Safety Report 19770620 (Version 1)
Quarter: 2021Q3

REPORT INFORMATION
  Report Type: Spontaneous
  Country: US (occurrence: US)
  Receive Date: 20210901
  Receipt Date: 20210901
  Transmission Date: 20211014
  Serious: No
  Sender: FDA-Public Use
  Company Number: US-TEVA-2021-US-1947039

PATIENT
  Age: 37 Year
  Sex: Female
  Weight: 67.13 kg

DRUGS (3)
  1. CINQAIR [Suspect]
     Active Substance: RESLIZUMAB
     Indication: ASTHMA
     Dosage: 100 MG / 10 ML
     Route: 065
     Dates: start: 20210524
  2. CINQAIR [Suspect]
     Active Substance: RESLIZUMAB
     Route: 065
     Dates: start: 202107
  3. QVAR REDIHALER [Suspect]
     Active Substance: BECLOMETHASONE DIPROPIONATE
     Route: 065

REACTIONS (3)
  - Dyspnoea [Unknown]
  - Discomfort [Unknown]
  - Wheezing [Unknown]

NARRATIVE: CASE EVENT DATE: 2021
